FAERS Safety Report 15575730 (Version 1)
Quarter: 2018Q4

REPORT INFORMATION
  Report Type: Spontaneous
  Country: GB (occurrence: GB)
  Receive Date: 20181101
  Receipt Date: 20181101
  Transmission Date: 20190205
  Serious: Yes (Other)
  Sender: FDA-Public Use
  Company Number: GB-ASTRAZENECA-2018SF41517

PATIENT
  Age: 39 Year
  Sex: Female
  Weight: 125 kg

DRUGS (17)
  1. VENTOLIN [Concomitant]
     Active Substance: ALBUTEROL SULFATE
     Dosage: 2.0DF UNKNOWN
     Route: 055
     Dates: start: 20180920, end: 20180921
  2. AMITRIPTYLINE HYDROCHLORIDE. [Concomitant]
     Active Substance: AMITRIPTYLINE HYDROCHLORIDE
     Dates: start: 20180612
  3. SIMVASTATIN. [Concomitant]
     Active Substance: SIMVASTATIN
     Dates: start: 20180612
  4. METFORMIN [Concomitant]
     Active Substance: METFORMIN HYDROCHLORIDE
     Dates: start: 20180612
  5. APIXABAN [Concomitant]
     Active Substance: APIXABAN
     Dates: start: 20180903, end: 20181001
  6. CANDESARTAN. [Concomitant]
     Active Substance: CANDESARTAN
     Dates: start: 20180612
  7. OXYCODONE HYDROCHLORIDE. [Concomitant]
     Active Substance: OXYCODONE HYDROCHLORIDE
     Dates: start: 20181008
  8. DAPAGLIFLOZIN. [Suspect]
     Active Substance: DAPAGLIFLOZIN
     Dosage: 5.0MG UNKNOWN
     Route: 048
     Dates: start: 20181011
  9. ETHINYLESTRADIOL [Concomitant]
     Active Substance: ETHINYL ESTRADIOL
     Dates: start: 20180801, end: 20180905
  10. OXYCODONE HYDROCHLORIDE. [Concomitant]
     Active Substance: OXYCODONE HYDROCHLORIDE
     Dosage: ONE IN THE MORNING AND ONE IN THE EVENING
     Dates: start: 20171127
  11. CILEST [Concomitant]
     Active Substance: ETHINYL ESTRADIOL\NORGESTIMATE
     Dates: start: 20170829, end: 20180801
  12. DULOXETINE. [Concomitant]
     Active Substance: DULOXETINE
     Dosage: ONE IN THE MORING AND ONE IN THE EVENING
     Dates: start: 20180612
  13. DAPAGLIFLOZIN. [Concomitant]
     Active Substance: DAPAGLIFLOZIN
     Dates: start: 20180612, end: 20181011
  14. DESOGESTREL [Concomitant]
     Active Substance: DESOGESTREL
     Dates: start: 20180905
  15. PREGABALIN. [Concomitant]
     Active Substance: PREGABALIN
     Dosage: ONE IN THE MORNING AND ONE IN THE EVENING
     Dates: start: 20180612
  16. FERROUS FUMARATE [Concomitant]
     Active Substance: FERROUS FUMARATE
     Dates: start: 20180612
  17. BUPRENORPHINE. [Concomitant]
     Active Substance: BUPRENORPHINE
     Dosage: 1.0DF UNKNOWN
     Dates: start: 20180122

REACTIONS (1)
  - Microembolism [Recovering/Resolving]

NARRATIVE: CASE EVENT DATE: 20181011
